FAERS Safety Report 16083131 (Version 1)
Quarter: 2019Q1

REPORT INFORMATION
  Report Type: Spontaneous
  Country: GB (occurrence: GB)
  Receive Date: 20190318
  Receipt Date: 20190318
  Transmission Date: 20190418
  Serious: Yes (Hospitalization, Other)
  Sender: FDA-Public Use
  Company Number: GB-ACCORD-113830

PATIENT
  Age: 66 Year
  Sex: Female
  Weight: 63.5 kg

DRUGS (16)
  1. NYSTAN [Concomitant]
     Active Substance: NYSTATIN
  2. LOPERAMIDE [Concomitant]
     Active Substance: LOPERAMIDE
  3. OMEPRAZOLE. [Concomitant]
     Active Substance: OMEPRAZOLE
  4. DEXAMETHASONE. [Concomitant]
     Active Substance: DEXAMETHASONE
  5. ZARZIO [Concomitant]
     Active Substance: FILGRASTIM
  6. CHLORAMPHENICOL [Concomitant]
     Active Substance: CHLORAMPHENICOL
  7. ZOMORPH [Concomitant]
     Active Substance: MORPHINE SULFATE
  8. CALCEOS [Concomitant]
     Active Substance: CALCIUM CARBONATE\CHOLECALCIFEROL
  9. SPIRONOLACTONE. [Suspect]
     Active Substance: SPIRONOLACTONE
     Indication: PRODUCT USED FOR UNKNOWN INDICATION
     Dosage: MORNING
     Route: 048
  10. PALBOCICLIB [Concomitant]
     Active Substance: PALBOCICLIB
  11. AMITRIPTYLINE [Concomitant]
     Active Substance: AMITRIPTYLINE
  12. DOMPERIDONE [Concomitant]
     Active Substance: DOMPERIDONE
  13. ATORVASTATIN [Concomitant]
     Active Substance: ATORVASTATIN
  14. METFORMIN [Concomitant]
     Active Substance: METFORMIN HYDROCHLORIDE
  15. LETROZOLE. [Concomitant]
     Active Substance: LETROZOLE
  16. ACICLOVIR [Concomitant]
     Active Substance: ACYCLOVIR

REACTIONS (2)
  - Blood magnesium decreased [Unknown]
  - Hyperkalaemia [Recovering/Resolving]
